FAERS Safety Report 16144891 (Version 1)
Quarter: 2019Q1

REPORT INFORMATION
  Report Type: Spontaneous
  Country: US (occurrence: US)
  Receive Date: 20190227
  Receipt Date: 20190227
  Transmission Date: 20190418
  Serious: Yes (Hospitalization)
  Sender: FDA-Public Use
  Company Number: None

PATIENT
  Age: 14 Year
  Sex: Female

DRUGS (28)
  1. CYPROHEPTAD [Concomitant]
  2. SODIUM CHLORIDE 7% [Suspect]
     Active Substance: SODIUM CHLORIDE
     Indication: CYSTIC FIBROSIS
     Route: 005
     Dates: start: 20180226
  3. LORAZEPAM. [Concomitant]
     Active Substance: LORAZEPAM
  4. SPIRVA [Concomitant]
  5. SERTRALINE [Concomitant]
     Active Substance: SERTRALINE HYDROCHLORIDE
  6. CIPROFLOXACIN. [Concomitant]
     Active Substance: CIPROFLOXACIN
  7. CITALOPRAM [Concomitant]
     Active Substance: CITALOPRAM HYDROBROMIDE
  8. PULMOZYME [Concomitant]
     Active Substance: DORNASE ALFA
  9. LEVALBUTEROL NEB [Concomitant]
  10. HYDROXYZ HCL [Concomitant]
     Active Substance: HYDROXYZINE HYDROCHLORIDE
  11. SPECIAL [Concomitant]
  12. TUMS EX [Concomitant]
     Active Substance: CALCIUM CARBONATE
  13. POLYETH [Concomitant]
  14. ALVESCO [Concomitant]
     Active Substance: CICLESONIDE
  15. LEVOTHYOXINE [Concomitant]
     Active Substance: LEVOTHYROXINE
  16. CITALOPRAM [Concomitant]
     Active Substance: CITALOPRAM HYDROBROMIDE
  17. MONTELUKAST [Concomitant]
     Active Substance: MONTELUKAST SODIUM
  18. POLYETH [Concomitant]
  19. COMEPRAZOLE [Concomitant]
  20. PREDNISONE. [Concomitant]
     Active Substance: PREDNISONE
  21. SOD CHL [Concomitant]
  22. CEFDINIR. [Concomitant]
     Active Substance: CEFDINIR
  23. ONDANSETRON [Concomitant]
     Active Substance: ONDANSETRON
  24. COMPLETE FORM D5000 [Concomitant]
  25. METRONIDAZOLE. [Concomitant]
     Active Substance: METRONIDAZOLE
  26. CLINDAMYCIN. [Concomitant]
     Active Substance: CLINDAMYCIN
  27. AZITHROMYCIN ANHYDROUS. [Concomitant]
     Active Substance: AZITHROMYCIN ANHYDROUS
  28. OMEPRAZOLE. [Concomitant]
     Active Substance: OMEPRAZOLE

REACTIONS (1)
  - Respiratory disorder [None]
